FAERS Safety Report 6425538-7 (Version None)
Quarter: 2009Q4

REPORT INFORMATION
  Report Type: 
  Country: None (occurrence: None)
  Receive Date: 20091103
  Receipt Date: 20091029
  Transmission Date: 20100525
  Serious: Yes (Death, Hospitalization)
  Sender: FDA-Public Use
  Company Number: FR-JNJFOC-20091008771

PATIENT
  Sex: Female

DRUGS (11)
  1. INTELENCE [Suspect]
     Indication: HIV INFECTION
     Route: 048
  2. TRUVADA [Suspect]
     Indication: HIV INFECTION
  3. TRIFLUCAN [Suspect]
     Route: 048
  4. TRIFLUCAN [Suspect]
     Indication: MENINGITIS CRYPTOCOCCAL
     Route: 048
  5. MABTHERA [Suspect]
     Indication: NON-HODGKIN'S LYMPHOMA
     Route: 042
  6. VINCRISTINE [Suspect]
     Indication: NON-HODGKIN'S LYMPHOMA
     Route: 042
  7. DOXORUBICIN HCL [Suspect]
     Indication: NON-HODGKIN'S LYMPHOMA
     Route: 042
  8. CYCLOPHOSPHAMIDE [Concomitant]
  9. PREDNISONE TAB [Concomitant]
  10. CANCIDAS [Concomitant]
  11. NEULASTA [Concomitant]

REACTIONS (3)
  - CARDIO-RESPIRATORY ARREST [None]
  - CRYPTOCOCCOSIS [None]
  - TORSADE DE POINTES [None]
